FAERS Safety Report 11697018 (Version 9)
Quarter: 2017Q1

REPORT INFORMATION
  Report Type: Spontaneous
  Country: US (occurrence: US)
  Receive Date: 20151104
  Receipt Date: 20170221
  Transmission Date: 20170428
  Serious: No
  Sender: FDA-Public Use
  Company Number: PHEH2015US022433

PATIENT
  Sex: Female

DRUGS (2)
  1. ZOFRAN [Suspect]
     Active Substance: ONDANSETRON HYDROCHLORIDE
     Indication: VOMITING IN PREGNANCY
     Dosage: 08 MG, Q8H
     Route: 048
     Dates: start: 20130717
  2. ZOFRAN [Suspect]
     Active Substance: ONDANSETRON HYDROCHLORIDE
     Dosage: 04 MG, Q12H
     Route: 048
     Dates: start: 20130727

REACTIONS (10)
  - Product use issue [Unknown]
  - Anxiety [Unknown]
  - Pain [Unknown]
  - Nasal congestion [Unknown]
  - Headache [Unknown]
  - Injury [Unknown]
  - Back pain [Unknown]
  - Emotional distress [Unknown]
  - Maternal exposure during pregnancy [Unknown]
  - Cough [Unknown]
